FAERS Safety Report 23218267 (Version 1)
Quarter: 2023Q4

REPORT INFORMATION
  Report Type: Spontaneous
  Country: US (occurrence: US)
  Receive Date: 20231122
  Receipt Date: 20231122
  Transmission Date: 20240109
  Serious: No
  Sender: FDA-Public Use
  Company Number: US-PERRIGO-23US007959

PATIENT

DRUGS (1)
  1. NICOTINE POLACRILEX [Suspect]
     Active Substance: NICOTINE
     Indication: Product used for unknown indication
     Dosage: 4 MG, QD
     Route: 002
     Dates: start: 20230628

REACTIONS (4)
  - Illness [Unknown]
  - Cough [Unknown]
  - Vomiting [Unknown]
  - Throat irritation [Unknown]

NARRATIVE: CASE EVENT DATE: 20230628
